FAERS Safety Report 16411742 (Version 1)
Quarter: 2019Q2

REPORT INFORMATION
  Report Type: Spontaneous
  Country: US (occurrence: US)
  Receive Date: 20190610
  Receipt Date: 20190610
  Transmission Date: 20190711
  Serious: No
  Sender: FDA-Public Use
  Company Number: US-TEVA-2019-US-1056410

PATIENT
  Sex: Male

DRUGS (1)
  1. CLONAZEPAM. [Suspect]
     Active Substance: CLONAZEPAM
     Indication: ANXIETY
     Dosage: ACTAVIS BRAND; 3 TIMES PER DAY
     Route: 065
     Dates: start: 201903

REACTIONS (3)
  - Somnolence [Unknown]
  - Product substitution issue [Unknown]
  - Drug ineffective [Unknown]
